FAERS Safety Report 6983373-5 (Version None)
Quarter: 2010Q3

REPORT INFORMATION
  Report Type: 
  Country: None (occurrence: None)
  Receive Date: 20100914
  Receipt Date: 20100908
  Transmission Date: 20110219
  Serious: Yes (Other)
  Sender: FDA-Public Use
  Company Number: US-BRISTOL-MYERS SQUIBB COMPANY-15021884

PATIENT
  Age: 33 Year
  Sex: Male
  Weight: 95 kg

DRUGS (3)
  1. ABILIFY [Suspect]
     Indication: DEPRESSION
     Dosage: STARTED 5MG,INCREASED 15MG THEN 10MGBID,20MG 1/2TAB BID INCREASE-20MG,30MG CUT IN HALF CURRENT:10MG
     Dates: start: 20100209
  2. RESTORIL [Suspect]
  3. BUPROPION HCL [Concomitant]

REACTIONS (15)
  - ANXIETY [None]
  - ASTHENIA [None]
  - DEPRESSION [None]
  - DISTURBANCE IN ATTENTION [None]
  - DIZZINESS [None]
  - DROOLING [None]
  - FALL [None]
  - HEADACHE [None]
  - HYPERPHAGIA [None]
  - HYPERSOMNIA [None]
  - HYPOTENSION [None]
  - LOSS OF CONSCIOUSNESS [None]
  - PHOTOSENSITIVITY REACTION [None]
  - TREATMENT NONCOMPLIANCE [None]
  - URINE ABNORMALITY [None]
